FAERS Safety Report 13531386 (Version 1)
Quarter: 2017Q2

REPORT INFORMATION
  Report Type: Spontaneous
  Country: KR (occurrence: KR)
  Receive Date: 20170510
  Receipt Date: 20170510
  Transmission Date: 20170830
  Serious: Yes (Other)
  Sender: FDA-Public Use
  Company Number: KR-SUN PHARMACEUTICAL INDUSTRIES LTD-2017RR-139415

PATIENT
  Age: 91 Year
  Sex: Female

DRUGS (1)
  1. FERROUS SULFATE. [Suspect]
     Active Substance: FERROUS SULFATE
     Indication: IRON DEFICIENCY ANAEMIA
     Dosage: DAILY TABLETS FOR THE LAST 3 YEARS
     Route: 048

REACTIONS (1)
  - Respiratory tract inflammation [Recovered/Resolved]
